FAERS Safety Report 14681957 (Version 2)
Quarter: 2018Q2

REPORT INFORMATION
  Report Type: Spontaneous
  Country: BE (occurrence: BE)
  Receive Date: 20180326
  Receipt Date: 20180626
  Transmission Date: 20180711
  Serious: Yes (Hospitalization)
  Sender: FDA-Public Use
  Company Number: BE-BAUSCH-BL-2018-007121

PATIENT
  Age: 34 Year
  Sex: Female
  Weight: 68 kg

DRUGS (14)
  1. NASONEX [Suspect]
     Active Substance: MOMETASONE FUROATE
     Indication: RHINITIS ALLERGIC
     Route: 045
     Dates: start: 20151126, end: 20160601
  2. XOLAIR [Suspect]
     Active Substance: OMALIZUMAB
     Indication: CHRONIC SPONTANEOUS URTICARIA
     Route: 058
     Dates: start: 20111119, end: 20160519
  3. CELESTONE [Concomitant]
     Active Substance: BETAMETHASONE
     Indication: PRODUCT USED FOR UNKNOWN INDICATION
     Route: 065
     Dates: start: 20161219, end: 20161220
  4. ASPIRINE [Concomitant]
     Active Substance: ASPIRIN
     Indication: PRODUCT USED FOR UNKNOWN INDICATION
     Route: 065
  5. AUGMENTIN [Concomitant]
     Active Substance: AMOXICILLIN\CLAVULANATE POTASSIUM
     Indication: PRODUCT USED FOR UNKNOWN INDICATION
     Route: 065
     Dates: start: 20070109
  6. CLINDAMYCIN PHOSPHATE. [Suspect]
     Active Substance: CLINDAMYCIN PHOSPHATE
     Indication: ACNE
     Route: 061
     Dates: start: 20160128, end: 20160601
  7. FERO-GRAD [Suspect]
     Active Substance: FERROUS SULFATE\SODIUM ASCORBATE
     Indication: ALOPECIA
     Route: 048
     Dates: start: 20160125, end: 20160601
  8. AERIUS [Suspect]
     Active Substance: DESLORATADINE
     Indication: CHRONIC SPONTANEOUS URTICARIA
     Route: 048
     Dates: start: 20150603, end: 20160601
  9. SERETIDE [Suspect]
     Active Substance: FLUTICASONE PROPIONATE\SALMETEROL XINAFOATE
     Indication: ASTHMA
     Route: 055
     Dates: start: 20150320, end: 20160601
  10. PANTOPRAZOLE SODIUM. [Suspect]
     Active Substance: PANTOPRAZOLE SODIUM
     Indication: PRODUCT USED FOR UNKNOWN INDICATION
     Route: 048
     Dates: start: 20160125, end: 20160601
  11. ASPIRINE [Concomitant]
     Active Substance: ASPIRIN
     Route: 065
  12. VENTOLINE [Suspect]
     Active Substance: ALBUTEROL
     Indication: ASTHMA
     Dosage: AS NEEDED
     Route: 055
     Dates: start: 20150320, end: 20160601
  13. LEVOTHYROXINE SODIUM. [Concomitant]
     Active Substance: LEVOTHYROXINE SODIUM
     Indication: AUTOIMMUNE THYROIDITIS
  14. TRECLINAX [Suspect]
     Active Substance: CLINDAMYCIN PHOSPHATE\TRETINOIN
     Indication: ACNE
     Route: 061
     Dates: start: 20160128, end: 20160601

REACTIONS (2)
  - Premature delivery [Unknown]
  - Maternal exposure during pregnancy [Not Recovered/Not Resolved]

NARRATIVE: CASE EVENT DATE: 2016
